FAERS Safety Report 8565641-9 (Version None)
Quarter: 2012Q3

REPORT INFORMATION
  Report Type: 
  Country: None (occurrence: None)
  Receive Date: 20120803
  Receipt Date: 20120723
  Transmission Date: 20120928
  Serious: Yes (Other)
  Sender: FDA-Public Use
  Company Number: US-ELI_LILLY_AND_COMPANY-US201207008120

PATIENT
  Sex: Male

DRUGS (4)
  1. HUMALOG MIX 75/25 [Suspect]
     Indication: DIABETES MELLITUS
     Dosage: 26 U, QD
     Dates: start: 20120301
  2. HUMULIN R [Suspect]
     Indication: DIABETES MELLITUS
     Dosage: UNK, PRN
     Dates: start: 20020101, end: 20120301
  3. AMARYL [Concomitant]
  4. HUMULIN N [Suspect]
     Indication: DIABETES MELLITUS
     Dosage: UNK, UNKNOWN
     Dates: start: 20020101, end: 20120301

REACTIONS (4)
  - DRUG EFFECT DECREASED [None]
  - BLOOD GLUCOSE INCREASED [None]
  - INCORRECT DOSE ADMINISTERED [None]
  - BLINDNESS [None]
